FAERS Safety Report 15084309 (Version 2)
Quarter: 2018Q3

REPORT INFORMATION
  Report Type: Report from Study
  Country: CA (occurrence: CA)
  Receive Date: 20180628
  Receipt Date: 20180702
  Transmission Date: 20181010
  Serious: No
  Sender: FDA-Public Use
  Company Number: CA-OREXIGEN THERAPEUTICS INC.-2018-005289

PATIENT

DRUGS (2)
  1. CONTRAVE [Suspect]
     Active Substance: BUPROPION HYDROCHLORIDE\NALTREXONE HYDROCHLORIDE
     Dosage: 3 TAB, QD, TWO TABLETS IN MORNING AND ONE AT NIGHT
     Route: 048
     Dates: start: 20180607, end: 201806
  2. CONTRAVE [Suspect]
     Active Substance: BUPROPION HYDROCHLORIDE\NALTREXONE HYDROCHLORIDE
     Indication: WEIGHT CONTROL
     Dosage: INITIATED 5 WEEKS AGO
     Route: 048
     Dates: start: 201805

REACTIONS (13)
  - Paraesthesia [Recovered/Resolved]
  - Blood potassium decreased [Recovering/Resolving]
  - Feeling abnormal [Recovering/Resolving]
  - Asthenia [Recovered/Resolved]
  - Sedation [Recovering/Resolving]
  - Eye disorder [Recovered/Resolved]
  - Fatigue [Recovered/Resolved]
  - Electrocardiogram abnormal [Recovering/Resolving]
  - Malaise [Recovered/Resolved]
  - Heart rate irregular [Recovered/Resolved]
  - Dizziness [Recovering/Resolving]
  - Muscle tightness [Recovered/Resolved]
  - Drug titration error [Unknown]

NARRATIVE: CASE EVENT DATE: 20180612
